FAERS Safety Report 21366785 (Version 1)
Quarter: 2022Q3

REPORT INFORMATION
  Report Type: Spontaneous
  Country: US (occurrence: US)
  Receive Date: 20220923
  Receipt Date: 20220923
  Transmission Date: 20221027
  Serious: No
  Sender: FDA-Public Use
  Company Number: US-SA-SAC20220914001084

PATIENT
  Age: 60 Year
  Sex: Female
  Weight: 58.9 kg

DRUGS (13)
  1. DUPIXENT [Suspect]
     Active Substance: DUPILUMAB
     Indication: Dermatitis atopic
     Dosage: 1 SYRINGE (300 MG) UNDER THE SKIN FREQUENCY: EVERY 2 WEEKS
     Route: 058
     Dates: start: 20210202
  2. CLOBETASOL [Concomitant]
     Active Substance: CLOBETASOL
     Dosage: EMOLLIENT
  3. FISH OIL [Concomitant]
     Active Substance: FISH OIL
  4. GLUCOSAMIN CHONDROITIN [CHONDROITIN SULFATE;GLUCOSAMINE SULFATE] [Concomitant]
  5. LEVOCETIRIZINE [Concomitant]
     Active Substance: LEVOCETIRIZINE
  6. PATADAY [Concomitant]
     Active Substance: OLOPATADINE HYDROCHLORIDE
  7. RESTASIS [Concomitant]
     Active Substance: CYCLOSPORINE
  8. TRIAMCINOLONE ACETONIDE [Concomitant]
     Active Substance: TRIAMCINOLONE ACETONIDE
  9. TURMERIC CURCUMIN [CURCUMA LONGA] [Concomitant]
  10. PROBIOTICS NOS [Concomitant]
     Active Substance: PROBIOTICS NOS
  11. VITAMINS NOS [Concomitant]
     Active Substance: VITAMINS
  12. COENZYME Q10 [Concomitant]
     Active Substance: DIETARY SUPPLEMENT\UBIDECARENONE
  13. ALLEGRA ALLERGY [Concomitant]
     Active Substance: FEXOFENADINE HYDROCHLORIDE

REACTIONS (7)
  - Dermatitis atopic [Unknown]
  - Skin ulcer [Recovering/Resolving]
  - Condition aggravated [Recovering/Resolving]
  - Rash erythematous [Recovering/Resolving]
  - Rash pruritic [Recovering/Resolving]
  - Dermatitis [Recovering/Resolving]
  - Sensitive skin [Recovering/Resolving]

NARRATIVE: CASE EVENT DATE: 20220101
